FAERS Safety Report 5390567-1 (Version None)
Quarter: 2007Q3

REPORT INFORMATION
  Report Type: 
  Country: None (occurrence: None)
  Receive Date: 20070718
  Receipt Date: 20060911
  Transmission Date: 20080115
  Serious: No
  Sender: FDA-Public Use
  Company Number: US-KINGPHARMUSA00001-K200601158

PATIENT

DRUGS (3)
  1. LEVOXYL [Suspect]
     Indication: HYPOTHYROIDISM
     Dosage: 125 MCG, QD
     Route: 048
     Dates: start: 20010101, end: 20060101
  2. LEVOXYL [Suspect]
     Dosage: 112 MG, QD
     Route: 048
     Dates: start: 20060101
  3. LOTENSIN [Concomitant]
     Indication: HYPERTENSION
     Dosage: UNK, UNK

REACTIONS (2)
  - FATIGUE [None]
  - HOT FLUSH [None]
